FAERS Safety Report 13921451 (Version 1)
Quarter: 2017Q3

REPORT INFORMATION
  Report Type: Spontaneous
  Country: US (occurrence: US)
  Receive Date: 20170830
  Receipt Date: 20170830
  Transmission Date: 20171127
  Serious: Yes (Other)
  Sender: FDA-Public Use
  Company Number: US-ALLERGAN-1727688US

PATIENT
  Age: 75 Year
  Sex: Female

DRUGS (4)
  1. NAMENDA [Suspect]
     Active Substance: MEMANTINE HYDROCHLORIDE
     Indication: COGNITIVE DISORDER
     Dosage: 5 MG, QD
     Route: 048
     Dates: start: 2016, end: 20161023
  2. DONEPEZIL. [Suspect]
     Active Substance: DONEPEZIL
     Indication: COGNITIVE DISORDER
     Dosage: 5 MG, QD
     Route: 048
     Dates: start: 20160804, end: 20160804
  3. DONEPEZIL. [Suspect]
     Active Substance: DONEPEZIL
     Dosage: 2.5 MG, QD
     Route: 048
     Dates: start: 20160808, end: 20160818
  4. NAMENDA XR [Suspect]
     Active Substance: MEMANTINE HYDROCHLORIDE
     Indication: COGNITIVE DISORDER
     Dosage: 28 MG, UNK
     Dates: start: 2016

REACTIONS (5)
  - Off label use [Unknown]
  - Balance disorder [Unknown]
  - Cerebrovascular accident [Unknown]
  - Drug dose omission [Unknown]
  - Fatigue [Unknown]

NARRATIVE: CASE EVENT DATE: 2016
